FAERS Safety Report 7383400-X (Version None)
Quarter: 2011Q1

REPORT INFORMATION
  Report Type: 
  Country: None (occurrence: None)
  Receive Date: 20110330
  Receipt Date: 20110329
  Transmission Date: 20110831
  Serious: Yes (Hospitalization)
  Sender: FDA-Public Use
  Company Number: IT-SANOFI-AVENTIS-2011SA018797

PATIENT
  Age: 67 Year
  Sex: Male

DRUGS (9)
  1. ATENOLOL [Suspect]
     Route: 048
     Dates: start: 20070101
  2. LASIX [Suspect]
     Route: 048
     Dates: start: 20070101, end: 20110325
  3. ACESISTEM [Suspect]
     Indication: ESSENTIAL HYPERTENSION
     Route: 048
     Dates: start: 20070101, end: 20110325
  4. DOXAZOSIN MESYLATE [Suspect]
     Route: 048
     Dates: start: 20070101, end: 20110325
  5. KCL-RETARD [Concomitant]
     Route: 048
  6. ADALAT [Suspect]
     Indication: ESSENTIAL HYPERTENSION
     Route: 048
     Dates: start: 20070101
  7. SIMVASTATIN [Concomitant]
     Route: 065
  8. ASPIRIN [Concomitant]
     Route: 065
  9. OMEPRAZOLE [Concomitant]
     Route: 065

REACTIONS (2)
  - HYPOTENSION [None]
  - BRADYCARDIA [None]
